FAERS Safety Report 7247300-8 (Version None)
Quarter: 2011Q1

REPORT INFORMATION
  Report Type: 
  Country: None (occurrence: None)
  Receive Date: 20110127
  Receipt Date: 20110122
  Transmission Date: 20110831
  Serious: Yes (Death)
  Sender: FDA-Public Use
  Company Number: A0909388A

PATIENT
  Sex: Female

DRUGS (2)
  1. SPIRIVA [Concomitant]
  2. SERETIDE [Suspect]

REACTIONS (1)
  - DEATH [None]
